FAERS Safety Report 13656169 (Version 2)
Quarter: 2017Q2

REPORT INFORMATION
  Report Type: Report from Study
  Country: None (occurrence: CH)
  Receive Date: 20170615
  Receipt Date: 20170624
  Transmission Date: 20170830
  Serious: Yes (Hospitalization)
  Sender: FDA-Public Use
  Company Number: CH-ABBVIE-17K-151-2006231-00

PATIENT
  Age: 80 Year
  Sex: Male

DRUGS (9)
  1. TRANSIPEG FORTE [Concomitant]
     Indication: PRODUCT USED FOR UNKNOWN INDICATION
  2. MINIRIN [Concomitant]
     Active Substance: DESMOPRESSIN ACETATE
     Indication: PRODUCT USED FOR UNKNOWN INDICATION
  3. RIVOTRIL [Concomitant]
     Active Substance: CLONAZEPAM
     Indication: PRODUCT USED FOR UNKNOWN INDICATION
  4. ESOMEP [Concomitant]
     Active Substance: ESOMEPRAZOLE
     Indication: PRODUCT USED FOR UNKNOWN INDICATION
  5. DUODOPA [Suspect]
     Active Substance: CARBIDOPA\LEVODOPA
     Indication: PARKINSON^S DISEASE
     Dosage: MD 9.0ML, CRD 7.6ML/H, CRN 5.4ML/H, ED 3.0ML, 24H THERAPY
     Route: 050
     Dates: start: 201605, end: 20170607
  6. DUODOPA [Suspect]
     Active Substance: CARBIDOPA\LEVODOPA
     Dosage: MD 9.0ML, CRD 7.5ML/H, CRN 5.3ML/H, ED 3.0ML, 24H THERAPY
     Route: 050
     Dates: start: 20170608
  7. SPASMO-URGENIN [Concomitant]
     Active Substance: HERBALS\TROSPIUM
     Indication: PRODUCT USED FOR UNKNOWN INDICATION
  8. ASPIRIN CARDIO [Concomitant]
     Active Substance: ASPIRIN
     Indication: PRODUCT USED FOR UNKNOWN INDICATION
  9. EFFORTIL [Concomitant]
     Active Substance: ETILEFRINE HYDROCHLORIDE
     Indication: PRODUCT USED FOR UNKNOWN INDICATION

REACTIONS (11)
  - Arteriosclerosis [Unknown]
  - Fall [Unknown]
  - Osteopenia [Unknown]
  - Traumatic haematoma [Unknown]
  - Illusion [Unknown]
  - Disorientation [Not Recovered/Not Resolved]
  - Freezing phenomenon [Unknown]
  - Osteoarthritis [Unknown]
  - Skin abrasion [Unknown]
  - Femur fracture [Unknown]
  - Stoma site infection [Recovered/Resolved]

NARRATIVE: CASE EVENT DATE: 20160513
